FAERS Safety Report 23045269 (Version 1)
Quarter: 2023Q4

REPORT INFORMATION
  Report Type: Spontaneous
  Country: US (occurrence: US)
  Receive Date: 20231009
  Receipt Date: 20231009
  Transmission Date: 20240109
  Serious: No
  Sender: FDA-Public Use
  Company Number: US-drreddys-LIT/USA/23/0163113

PATIENT
  Age: 4 Year
  Sex: Female

DRUGS (3)
  1. MERCAPTOPURINE [Suspect]
     Active Substance: MERCAPTOPURINE
     Indication: B-cell type acute leukaemia
     Dosage: AT THE END OF CYCLE 3 OF MAINTENANCE CHEMOTHERAPY
     Route: 048
  2. MERCAPTOPURINE [Suspect]
     Active Substance: MERCAPTOPURINE
     Dosage: REDUCED DOSES WITH A MAXIMUM OF 57.5 PERCENT OF STANDARD DOSING IN CONJUNCTION WITH ALLOPURINOL
  3. ALLOPURINOL [Concomitant]
     Active Substance: ALLOPURINOL
     Indication: B-cell type acute leukaemia

REACTIONS (1)
  - Skin toxicity [Recovered/Resolved]
